FAERS Safety Report 4640707-4 (Version None)
Quarter: 2005Q2

REPORT INFORMATION
  Report Type: 
  Country: None (occurrence: None)
  Receive Date: 20050419
  Receipt Date: 20050404
  Transmission Date: 20051028
  Serious: No
  Sender: FDA-Public Use
  Company Number: 10808

PATIENT
  Age: 43 Year
  Sex: Female

DRUGS (3)
  1. METHOTREXATE [Suspect]
     Indication: RHEUMATOID ARTHRITIS
     Dosage: 20 MG WEEKLY, SC
     Route: 058
     Dates: start: 20041001, end: 20050307
  2. HYDROXYCHLOROQUINE SULFATE [Concomitant]
  3. IBUPROFEN [Concomitant]

REACTIONS (7)
  - ARTHRALGIA [None]
  - DYSPNOEA AT REST [None]
  - MYALGIA [None]
  - PERICARDIAL EFFUSION [None]
  - PLEURAL EFFUSION [None]
  - PNEUMONITIS [None]
  - RESTRICTIVE PULMONARY DISEASE [None]
